FAERS Safety Report 6132238-X (Version None)
Quarter: 2009Q1

REPORT INFORMATION
  Report Type: 
  Country: None (occurrence: None)
  Receive Date: 20090325
  Receipt Date: 20090316
  Transmission Date: 20090719
  Serious: Yes (Hospitalization)
  Sender: FDA-Public Use
  Company Number: US-PFIZER INC-2009183389

PATIENT
  Sex: Female
  Weight: 78.458 kg

DRUGS (25)
  1. BLINDED *PLACEBO [Suspect]
     Indication: OSTEOARTHRITIS
     Dosage: FREQUENCY: 3X/DAY
     Route: 048
     Dates: start: 20080321, end: 20090211
  2. BLINDED CELECOXIB [Suspect]
     Indication: OSTEOARTHRITIS
     Dosage: FREQUENCY: 3X/DAY
     Route: 048
     Dates: start: 20080321, end: 20090211
  3. IBUPROFEN TABLETS [Suspect]
     Indication: OSTEOARTHRITIS
     Dosage: FREQUENCY: 3X/DAY
     Route: 048
     Dates: start: 20080321, end: 20090211
  4. NAPROXEN [Suspect]
     Indication: OSTEOARTHRITIS
     Dosage: FREQUENCY: 3X/DAY
     Route: 048
     Dates: start: 20080321, end: 20090211
  5. BLINDED *PLACEBO [Suspect]
     Indication: RHEUMATOID ARTHRITIS
  6. BLINDED CELECOXIB [Suspect]
     Indication: RHEUMATOID ARTHRITIS
  7. IBUPROFEN TABLETS [Suspect]
     Indication: RHEUMATOID ARTHRITIS
  8. NAPROXEN [Suspect]
     Indication: RHEUMATOID ARTHRITIS
  9. NEXIUM [Concomitant]
     Dosage: UNK
     Route: 048
     Dates: start: 20080321
  10. IBANDRONATE SODIUM [Concomitant]
     Dosage: UNK
     Route: 048
     Dates: start: 20080201
  11. FUROSEMIDE [Concomitant]
     Dosage: UNK
     Route: 048
     Dates: start: 20000101
  12. LEVOTHYROXINE [Concomitant]
     Dosage: UNK
     Route: 048
     Dates: start: 20020510
  13. LISINOPRIL [Concomitant]
     Dosage: UNK
     Route: 048
     Dates: start: 20071101
  14. DARIFENACIN HYDROBROMIDE [Concomitant]
     Dosage: UNK
     Route: 048
     Dates: start: 20050101
  15. POTASSIUM CHLORIDE [Concomitant]
     Dosage: UNK
     Route: 048
     Dates: start: 20000101
  16. LIPITOR [Concomitant]
     Dosage: UNK
     Route: 048
     Dates: start: 20080201, end: 20090129
  17. SIMVASTATIN [Concomitant]
     Dosage: UNK
     Route: 048
     Dates: start: 20090130
  18. WELLBUTRIN [Concomitant]
     Dosage: UNK
     Route: 048
     Dates: start: 20000511
  19. MULTIPLE VITAMINS [Concomitant]
     Dosage: UNK
     Route: 048
     Dates: start: 20020101
  20. OSCAL [Concomitant]
     Dosage: UNK
     Route: 048
     Dates: start: 20000101
  21. DEPAKOTE [Concomitant]
     Dosage: UNK
     Route: 048
     Dates: start: 20080405
  22. METFORMIN [Concomitant]
     Dosage: UNK
     Route: 048
     Dates: start: 20080620
  23. AMBIEN [Concomitant]
     Dosage: UNK
     Route: 048
     Dates: start: 20080601
  24. THORAZINE [Concomitant]
     Dosage: UNK
     Route: 048
     Dates: start: 20081113
  25. ACETYLSALICYLIC ACID [Concomitant]
     Dosage: UNK
     Route: 048
     Dates: start: 20000511

REACTIONS (4)
  - DIARRHOEA [None]
  - ELECTROLYTE IMBALANCE [None]
  - HYPOTENSION [None]
  - RENAL FAILURE ACUTE [None]
